FAERS Safety Report 23524553 (Version 1)
Quarter: 2024Q1

REPORT INFORMATION
  Report Type: Report from Study
  Country: US (occurrence: US)
  Receive Date: 20240214
  Receipt Date: 20240214
  Transmission Date: 20240409
  Serious: Yes (Other)
  Sender: FDA-Public Use
  Company Number: US-ABBVIE-5544936

PATIENT
  Sex: Female
  Weight: 85 kg

DRUGS (1)
  1. HUMIRA [Suspect]
     Active Substance: ADALIMUMAB
     Indication: Rheumatoid arthritis
     Dosage: FORM STRENGTH 40 MILLIGRAMS?CITRATE FREE
     Route: 058

REACTIONS (6)
  - Surgery [Unknown]
  - Cellulitis [Unknown]
  - Lower limb fracture [Unknown]
  - Pneumonia [Unknown]
  - Rehabilitation therapy [Unknown]
  - Haemophilus infection [Unknown]
